FAERS Safety Report 5225042-8 (Version None)
Quarter: 2007Q1

REPORT INFORMATION
  Report Type: 
  Country: None (occurrence: None)
  Receive Date: 20070131
  Receipt Date: 20070123
  Transmission Date: 20070707
  Serious: Yes (Hospitalization)
  Sender: FDA-Public Use
  Company Number: JP-JPN-A200700072

PATIENT
  Age: 75 Year
  Sex: Male

DRUGS (13)
  1. MODACIN [Suspect]
     Indication: PNEUMONIA
     Dosage: 1G TWICE PER DAY
     Route: 042
     Dates: start: 20061205, end: 20061211
  2. CIPROFLOXACIN [Suspect]
     Indication: PNEUMONIA
     Dosage: 300MG TWICE PER DAY
     Route: 042
     Dates: start: 20061120, end: 20061204
  3. CIPROFLOXACIN [Suspect]
     Dosage: 300MG TWICE PER DAY
     Route: 042
     Dates: start: 20061214, end: 20061226
  4. UNASYN [Concomitant]
     Indication: PNEUMONIA
     Dosage: 1.5G TWICE PER DAY
     Route: 042
     Dates: start: 20061107, end: 20061119
  5. BISOLVON [Concomitant]
     Route: 065
  6. SOLDEM 3A [Concomitant]
     Route: 042
  7. ZANTAC [Concomitant]
     Route: 065
  8. UNKNOWN DRUG [Concomitant]
     Route: 042
  9. HUMULIN 70/30 [Concomitant]
  10. VITAMEDIN [Concomitant]
  11. UNKNOWN DRUG [Concomitant]
  12. ISOTONIC SODIUM CHLORIDE SOLUTION [Concomitant]
  13. UNKNOWN MEDICATION [Concomitant]
     Route: 042

REACTIONS (1)
  - HEPATIC FUNCTION ABNORMAL [None]
